FAERS Safety Report 12544090 (Version 3)
Quarter: 2017Q3

REPORT INFORMATION
  Report Type: Spontaneous
  Country: JP (occurrence: JP)
  Receive Date: 20160711
  Receipt Date: 20170925
  Transmission Date: 20171127
  Serious: Yes (Other)
  Sender: FDA-Public Use
  Company Number: JP-ACCORD-042270

PATIENT
  Age: 27 Year
  Sex: Male
  Weight: 58 kg

DRUGS (5)
  1. ETOPOSIDE. [Suspect]
     Active Substance: ETOPOSIDE
     Indication: GERM CELL CANCER
     Dosage: EVERY 3 WEEKS, ON DAY 3, DAY 4 AND DAY 5
  2. CISPLATIN. [Suspect]
     Active Substance: CISPLATIN
     Indication: GERM CELL CANCER
     Dosage: EVERY 3 WEEKS, ON DAY 3 AND DAY 4
     Route: 041
  3. METHOTREXATE. [Suspect]
     Active Substance: METHOTREXATE
     Indication: GERM CELL CANCER
     Dosage: EVERY 3 WEEKS, ON DAY 1
  4. VINCRISTINE [Suspect]
     Active Substance: VINCRISTINE
     Indication: GERM CELL CANCER
     Dosage: EVERY 3 WEEKS, ON DAY 1?AND DAY 2
  5. PEPLOMYCIN/PEPLOMYCIN SULFATE [Suspect]
     Active Substance: PEPLOMYCIN SULFATE
     Indication: GERM CELL CANCER
     Dosage: EVERY 3 WEEKS, ON DAY 1, DAY 2 AND DAY 3

REACTIONS (1)
  - Acute myeloid leukaemia [Recovered/Resolved]

NARRATIVE: CASE EVENT DATE: 200209
